FAERS Safety Report 11730907 (Version 1)
Quarter: 2015Q4

REPORT INFORMATION
  Report Type: Spontaneous
  Country: US (occurrence: US)
  Receive Date: 20151110
  Receipt Date: 20151110
  Transmission Date: 20160304
  Serious: No
  Sender: FDA-Public Use
  Company Number: US-ELI_LILLY_AND_COMPANY-US201111002461

PATIENT
  Age: 81 Year
  Sex: Female

DRUGS (3)
  1. FORTEO [Suspect]
     Active Substance: TERIPARATIDE
     Indication: OSTEOPOROSIS
     Dosage: 20 UG, QD
     Route: 065
     Dates: start: 20111012, end: 201110
  2. PREDNISONE. [Concomitant]
     Active Substance: PREDNISONE
  3. CLINDAMYCIN [Concomitant]
     Active Substance: CLINDAMYCIN\CLINDAMYCIN PHOSPHATE
     Indication: CYSTITIS
     Dosage: UNK
     Dates: start: 20111014, end: 20111023

REACTIONS (9)
  - Erythema [Not Recovered/Not Resolved]
  - Urticaria [Unknown]
  - Adverse drug reaction [Unknown]
  - Diarrhoea [Unknown]
  - Injection site erythema [Not Recovered/Not Resolved]
  - Pruritus [Unknown]
  - Papule [Recovering/Resolving]
  - Injection site papule [Recovering/Resolving]
  - Rash [Recovering/Resolving]

NARRATIVE: CASE EVENT DATE: 201110
